FAERS Safety Report 16630906 (Version 2)
Quarter: 2019Q3

REPORT INFORMATION
  Report Type: Spontaneous
  Country: JP (occurrence: JP)
  Receive Date: 20190725
  Receipt Date: 20190814
  Transmission Date: 20191004
  Serious: Yes (Other)
  Sender: FDA-Public Use
  Company Number: PHJP2019JP009462

PATIENT
  Age: 82 Year
  Sex: Female
  Weight: 52.2 kg

DRUGS (2)
  1. AFINITOR [Suspect]
     Active Substance: EVEROLIMUS
     Indication: BREAST CANCER RECURRENT
     Dosage: 5 MG, UNK
     Route: 048
     Dates: start: 201804, end: 2018
  2. EXEMESTANE. [Suspect]
     Active Substance: EXEMESTANE
     Indication: BREAST CANCER RECURRENT
     Dosage: UNK
     Route: 065
     Dates: start: 201804, end: 201808

REACTIONS (9)
  - Stomatitis [Unknown]
  - Cerebral infarction [Unknown]
  - Neurologic neglect syndrome [Unknown]
  - Chronic kidney disease [Unknown]
  - Trousseau^s syndrome [Unknown]
  - Movement disorder [Unknown]
  - Deep vein thrombosis [Unknown]
  - Aphasia [Unknown]
  - Depressed level of consciousness [Recovering/Resolving]

NARRATIVE: CASE EVENT DATE: 2018
